FAERS Safety Report 10872755 (Version 2)
Quarter: 2015Q1

REPORT INFORMATION
  Report Type: Spontaneous
  Country: FR (occurrence: FR)
  Receive Date: 20150227
  Receipt Date: 20150313
  Transmission Date: 20150721
  Serious: Yes (Disabling, Other)
  Sender: FDA-Public Use
  Company Number: FR-AUROBINDO-AUR-APL-2015-01632

PATIENT
  Age: 73 Year
  Sex: Male

DRUGS (1)
  1. VALPROIC ACID. [Suspect]
     Active Substance: VALPROIC ACID
     Indication: MYOCLONUS
     Dosage: 1 G, DAILY
     Route: 065

REACTIONS (14)
  - Myoclonus [Unknown]
  - Hypertonia [Unknown]
  - Cerebellar atrophy [Unknown]
  - Wheelchair user [Unknown]
  - Freezing phenomenon [Unknown]
  - Coordination abnormal [Unknown]
  - Memory impairment [Unknown]
  - Aphasia [Unknown]
  - Tremor [Unknown]
  - Hypoperfusion [Unknown]
  - Cognitive disorder [Unknown]
  - Gait disturbance [Not Recovered/Not Resolved]
  - Attention deficit/hyperactivity disorder [Unknown]
  - Akinesia [Unknown]
